FAERS Safety Report 5950596-3 (Version None)
Quarter: 2008Q4

REPORT INFORMATION
  Report Type: 
  Country: None (occurrence: None)
  Receive Date: 20081022
  Receipt Date: 20080611
  Transmission Date: 20090506
  Serious: No
  Sender: FDA-Public Use
  Company Number: ALL1-2008-01765

PATIENT
  Sex: Female

DRUGS (1)
  1. VYVANSE [Suspect]
     Dosage: 140 MG,TWO 70 MG CAPSULES 1X/DAY:QD, ORAL
     Route: 048

REACTIONS (2)
  - INSOMNIA [None]
  - OVERDOSE [None]
